FAERS Safety Report 16275575 (Version 1)
Quarter: 2019Q2

REPORT INFORMATION
  Report Type: Spontaneous
  Country: SE (occurrence: SE)
  Receive Date: 20190506
  Receipt Date: 20190506
  Transmission Date: 20190711
  Serious: Yes (Other)
  Sender: FDA-Public Use
  Company Number: SE-SA-2019SA114980

PATIENT
  Age: 74 Year
  Sex: Male

DRUGS (12)
  1. ELIQUIS [Concomitant]
     Active Substance: APIXABAN
     Dosage: 5 MG, QD
     Dates: start: 20151117, end: 20171221
  2. CALCICHEW-D3 [Concomitant]
     Active Substance: CALCIUM\CHOLECALCIFEROL
     Dosage: 2 DF, QD
     Dates: start: 20150602, end: 20180219
  3. METOPROLOL ORION [Concomitant]
     Active Substance: METOPROLOL
     Dosage: 200 MG, QD
     Dates: start: 20130813, end: 20180219
  4. ARAVA [Suspect]
     Active Substance: LEFLUNOMIDE
     Dosage: 20 MG, QD
     Dates: start: 20110818, end: 20160503
  5. ATORVASTATIN [Suspect]
     Active Substance: ATORVASTATIN
     Dosage: 1 DF, QD
     Dates: start: 20150516, end: 20160503
  6. CARBAMIDE PEROXIDE [Concomitant]
     Active Substance: CARBAMIDE PEROXIDE
     Dosage: 1 DF,QD
     Dates: start: 20151104, end: 20171214
  7. DONEPEZIL HYDROCHLORIDE. [Suspect]
     Active Substance: DONEPEZIL HYDROCHLORIDE
     Indication: DEMENTIA ALZHEIMER^S TYPE
     Dosage: 5 MG, QD
     Dates: start: 20151208, end: 20160105
  8. BETNOVATE [Concomitant]
     Active Substance: BETAMETHASONE
     Dosage: ENLIGT S?RSKILD ORDINATION
     Dates: start: 20160405, end: 20171214
  9. PANODIL [Concomitant]
     Active Substance: ACETAMINOPHEN
     Dosage: VID BEHOV
     Dates: start: 20131202, end: 20170809
  10. SILDENAFIL STADA [Concomitant]
     Dosage: VID BEHOV
     Dates: start: 20130911, end: 20180219
  11. PREDNISOLONE. [Concomitant]
     Active Substance: PREDNISOLONE
     Dosage: UNK
     Dates: start: 20111206, end: 20180219
  12. ALENAT [Concomitant]
     Active Substance: ALENDRONATE SODIUM
     Dosage: 70 MG, QW
     Dates: start: 20150602, end: 20180219

REACTIONS (1)
  - Hepatic cirrhosis [Unknown]

NARRATIVE: CASE EVENT DATE: 201605
